FAERS Safety Report 8797399 (Version 1)
Quarter: 2012Q4

REPORT INFORMATION
  Report Type: Report from Study
  Country: HU (occurrence: HU)
  Receive Date: 20120919
  Receipt Date: 20120919
  Transmission Date: 20130627
  Serious: Yes (Other)
  Sender: FDA-Public Use
  Company Number: HU-ROCHE-1126421

PATIENT
  Sex: Female

DRUGS (4)
  1. XELODA [Suspect]
     Indication: BREAST CANCER
     Dosage: DOSE: 2 X 3
     Route: 048
     Dates: start: 20100210, end: 201009
  2. XELODA [Suspect]
     Indication: METASTASES TO LUNG
  3. XELODA [Suspect]
     Indication: METASTASES TO LYMPH NODES
  4. XELODA [Suspect]
     Indication: METASTASES TO BONE

REACTIONS (1)
  - Computerised tomogram abnormal [Unknown]
